FAERS Safety Report 5702224-X (Version None)
Quarter: 2008Q2

REPORT INFORMATION
  Report Type: 
  Country: None (occurrence: None)
  Receive Date: 20080411
  Receipt Date: 20080118
  Transmission Date: 20081010
  Serious: No
  Sender: FDA-Public Use
  Company Number: US-ABBOTT-08P-163-0434545-00

PATIENT
  Sex: Male
  Weight: 61.29 kg

DRUGS (10)
  1. DEPAKOTE [Suspect]
     Indication: AFFECTIVE DISORDER
     Route: 048
     Dates: start: 20070601, end: 20070801
  2. DEPAKOTE [Suspect]
     Indication: DEPRESSION
     Route: 048
     Dates: start: 20070801, end: 20071121
  3. DEPAKOTE [Suspect]
     Indication: ABNORMAL BEHAVIOUR
     Route: 048
     Dates: start: 20080115
  4. DEPAKOTE ER [Suspect]
     Indication: DRUG USE FOR UNKNOWN INDICATION
     Route: 048
     Dates: start: 20071121, end: 20080115
  5. SERTRALINE [Concomitant]
     Indication: AFFECTIVE DISORDER
     Route: 048
     Dates: start: 20061201
  6. SERTRALINE [Concomitant]
     Indication: DEPRESSION
  7. SERTRALINE [Concomitant]
     Indication: ABNORMAL BEHAVIOUR
  8. INVEGA ER [Concomitant]
     Indication: AFFECTIVE DISORDER
     Route: 048
     Dates: start: 20070820
  9. INVEGA ER [Concomitant]
     Indication: DEPRESSION
  10. INVEGA ER [Concomitant]
     Indication: ABNORMAL BEHAVIOUR

REACTIONS (4)
  - ABNORMAL BEHAVIOUR [None]
  - DRUG LEVEL DECREASED [None]
  - MEDICATION ERROR [None]
  - TREATMENT NONCOMPLIANCE [None]
